FAERS Safety Report 6327207-0 (Version None)
Quarter: 2009Q3

REPORT INFORMATION
  Report Type: 
  Country: None (occurrence: None)
  Receive Date: 20090825
  Receipt Date: 20090818
  Transmission Date: 20100115
  Serious: Yes (Other)
  Sender: FDA-Public Use
  Company Number: JP-BAYER-200912703BYL

PATIENT
  Age: 74 Year
  Sex: Female
  Weight: 39 kg

DRUGS (7)
  1. NEXAVAR [Suspect]
     Indication: RENAL CELL CARCINOMA STAGE IV
     Dosage: UNIT DOSE: 200 MG
     Route: 048
     Dates: start: 20090715, end: 20090727
  2. MELBIN [Concomitant]
     Dosage: TOTAL DAILY DOSE: 500 MG
     Route: 048
  3. GASTER D [Concomitant]
     Dosage: TOTAL DAILY DOSE: 2 DF
     Route: 048
  4. LIPITOR [Concomitant]
     Dosage: TOTAL DAILY DOSE: 10 MG
     Route: 048
  5. NU-LOTAN [Concomitant]
     Dosage: TOTAL DAILY DOSE: 25 MG  UNIT DOSE: 50 MG
     Route: 048
  6. TOUGHMAC E [Concomitant]
     Dosage: TOTAL DAILY DOSE: 3 DF
     Route: 048
  7. BIOFERMIN [Concomitant]
     Dosage: TOTAL DAILY DOSE: 3 DF
     Route: 048

REACTIONS (3)
  - BONE MARROW FAILURE [None]
  - PALMAR-PLANTAR ERYTHRODYSAESTHESIA SYNDROME [None]
  - RASH GENERALISED [None]
